FAERS Safety Report 7479915-6 (Version None)
Quarter: 2011Q2

REPORT INFORMATION
  Report Type: 
  Country: None (occurrence: None)
  Receive Date: 20110516
  Receipt Date: 20110505
  Transmission Date: 20111010
  Serious: Yes (Hospitalization)
  Sender: FDA-Public Use
  Company Number: US-BIOGENIDEC-2010BI044592

PATIENT
  Age: 55 Year
  Sex: Female

DRUGS (1)
  1. TYSABRI [Suspect]
     Indication: MULTIPLE SCLEROSIS
     Route: 042
     Dates: start: 20091022, end: 20100801

REACTIONS (7)
  - MULTIPLE SCLEROSIS RELAPSE [None]
  - GAIT DISTURBANCE [None]
  - URINARY TRACT INFECTION [None]
  - VAGINAL INFECTION [None]
  - SEPSIS [None]
  - INTESTINAL OBSTRUCTION [None]
  - ASTHENIA [None]
